FAERS Safety Report 9129075 (Version 1)
Quarter: 2013Q1

REPORT INFORMATION
  Report Type: Report from Study
  Country: CA (occurrence: CA)
  Receive Date: 20130228
  Receipt Date: 20130228
  Transmission Date: 20140127
  Serious: Yes (Death, Other)
  Sender: FDA-Public Use
  Company Number: CA-ROCHE-1196287

PATIENT
  Age: 76 Year
  Sex: 0

DRUGS (1)
  1. XELODA [Suspect]
     Indication: COLORECTAL CANCER
     Route: 065
     Dates: start: 20120420, end: 20121110

REACTIONS (2)
  - Death [Fatal]
  - Diarrhoea [Unknown]
